FAERS Safety Report 8362652-3 (Version None)
Quarter: 2012Q2

REPORT INFORMATION
  Report Type: 
  Country: None (occurrence: None)
  Receive Date: 20120516
  Receipt Date: 20120514
  Transmission Date: 20120825
  Serious: No
  Sender: FDA-Public Use
  Company Number: US-PFIZER INC-2012096385

PATIENT
  Sex: Female
  Weight: 55.782 kg

DRUGS (1)
  1. LYRICA [Suspect]
     Indication: NEUROPATHY PERIPHERAL
     Dosage: UNK
     Route: 048
     Dates: end: 20120401

REACTIONS (4)
  - PAIN [None]
  - PAIN IN EXTREMITY [None]
  - BACK PAIN [None]
  - MALAISE [None]
